FAERS Safety Report 9307894 (Version 2)
Quarter: 2013Q3

REPORT INFORMATION
  Report Type: Spontaneous
  Country: JP (occurrence: JP)
  Receive Date: 20130524
  Receipt Date: 20130709
  Transmission Date: 20140515
  Serious: Yes (Hospitalization)
  Sender: FDA-Public Use
  Company Number: PHHY2013JP051821

PATIENT
  Age: 70 Year
  Sex: Female

DRUGS (6)
  1. ZOLEDRONIC ACID [Suspect]
     Indication: BREAST CANCER STAGE IV
     Dosage: UNK UKN, UNK
     Route: 041
  2. LETROZOLE [Concomitant]
     Dosage: UNK UKN, UNK
  3. TOREMIFENE CITRATE [Concomitant]
     Dosage: UNK UKN, UNK
  4. GOSERELIN ACETATE [Concomitant]
     Dosage: UNK UKN, UNK
  5. CYCLOPHOSPHAMIDE MONOHYDRATE [Concomitant]
     Dosage: UNK UKN, UNK
  6. DOXIFLURIDINE [Concomitant]
     Dosage: UNK UKN, UNK

REACTIONS (9)
  - Fanconi syndrome [Recovering/Resolving]
  - Polyuria [Unknown]
  - Renal glycosuria [Unknown]
  - Thirst [Unknown]
  - Acidosis hyperchloraemic [Recovering/Resolving]
  - Aminoaciduria [Unknown]
  - Hypouricaemia [Unknown]
  - Hypokalaemia [Recovering/Resolving]
  - Decreased appetite [Recovered/Resolved]
